FAERS Safety Report 23959855 (Version 1)
Quarter: 2024Q2

REPORT INFORMATION
  Report Type: Spontaneous
  Country: IN (occurrence: None)
  Receive Date: 20240611
  Receipt Date: 20240611
  Transmission Date: 20240716
  Serious: Yes (Other)
  Sender: FDA-Public Use
  Company Number: IN-ROCHE-3575134

PATIENT
  Age: 61 Year
  Sex: Male

DRUGS (18)
  1. CYCLOPHOSPHAMIDE [Suspect]
     Active Substance: CYCLOPHOSPHAMIDE
     Indication: Diffuse large B-cell lymphoma
     Dosage: END DATE OF 1ST SYSTEMIC TREATMENT 21/AUG/2023
     Route: 065
     Dates: start: 20230502
  2. DOXORUBICIN [Suspect]
     Active Substance: DOXORUBICIN
     Indication: Diffuse large B-cell lymphoma
     Dosage: END DATE OF 1ST SYSTEMIC TREATMENT 21/AUG/2023
     Route: 065
     Dates: start: 20230502
  3. VINCRISTINE [Suspect]
     Active Substance: VINCRISTINE
     Indication: Diffuse large B-cell lymphoma
     Dosage: END DATE OF 1ST SYSTEMIC TREATMENT 21/AUG/2023
     Route: 065
     Dates: start: 20230502
  4. PREDNISONE [Suspect]
     Active Substance: PREDNISONE
     Indication: Diffuse large B-cell lymphoma
     Dosage: END DATE OF 1ST SYSTEMIC TREATMENT 21/AUG/2023
     Route: 065
     Dates: start: 20230502
  5. GEMCITABINE [Suspect]
     Active Substance: GEMCITABINE
     Indication: Diffuse large B-cell lymphoma
     Dosage: END DATE OF 2ND SYSTEMIC TREATMENT 06/NOV/2023
     Route: 065
     Dates: start: 20231007
  6. GEMCITABINE [Suspect]
     Active Substance: GEMCITABINE
     Dosage: END DATE OF 4TH SYSTEMIC TREATMENT 22/JAN/2024
     Route: 065
     Dates: start: 20240119
  7. DEXAMETHASONE [Suspect]
     Active Substance: DEXAMETHASONE
     Indication: Diffuse large B-cell lymphoma
     Dosage: END DATE OF 2ND SYSTEMIC TREATMENT 06/NOV/2023
     Route: 065
     Dates: start: 20231007
  8. CISPLATIN [Suspect]
     Active Substance: CISPLATIN
     Indication: Diffuse large B-cell lymphoma
     Dosage: END DATE OF 2ND SYSTEMIC TREATMENT 06/NOV/2023
     Route: 065
     Dates: start: 20231007
  9. CISPLATIN [Suspect]
     Active Substance: CISPLATIN
     Dosage: END DATE OF 4TH SYSTEMIC TREATMENT 22/JAN/2024
     Route: 065
     Dates: start: 20240119
  10. IFOSFAMIDE [Suspect]
     Active Substance: IFOSFAMIDE
     Indication: Diffuse large B-cell lymphoma
     Dosage: END DATE OF 3RD SYSTEMIC TREATMENT 11/DEC/2023
     Route: 065
     Dates: start: 20231208
  11. CARBOPLATIN [Suspect]
     Active Substance: CARBOPLATIN
     Indication: Diffuse large B-cell lymphoma
     Dosage: END DATE OF 3RD SYSTEMIC TREATMENT 11/DEC/2023
     Route: 065
     Dates: start: 20231208
  12. ETOPOSIDE PHOSPHATE [Suspect]
     Active Substance: ETOPOSIDE PHOSPHATE
     Indication: Diffuse large B-cell lymphoma
     Dosage: END DATE OF 3RD SYSTEMIC TREATMENT 11/DEC/2023
     Route: 065
     Dates: start: 20231208
  13. POLIVY [Suspect]
     Active Substance: POLATUZUMAB VEDOTIN-PIIQ
     Indication: Diffuse large B-cell lymphoma
     Dosage: END DATE OF 4TH SYSTEMIC TREATMENT 22/JAN/2024
     Route: 065
     Dates: start: 20240119
  14. VINORELBINE [Suspect]
     Active Substance: VINORELBINE TARTRATE
     Indication: Diffuse large B-cell lymphoma
     Dosage: END DATE OF 4TH SYSTEMIC TREATMENT 22/JAN/2024
     Route: 065
     Dates: start: 20240119
  15. DOXORUBICIN [Suspect]
     Active Substance: DOXORUBICIN
     Indication: Diffuse large B-cell lymphoma
     Dosage: END DATE OF 4TH SYSTEMIC TREATMENT 22/JAN/2024
     Route: 065
     Dates: start: 20240119
  16. NIVOLUMAB [Suspect]
     Active Substance: NIVOLUMAB
     Indication: Diffuse large B-cell lymphoma
     Dosage: END DATE OF 6TH SYSTEMIC TREATMENT 15/MAY/2024
     Route: 065
     Dates: start: 20240401
  17. RITUXIMAB [Suspect]
     Active Substance: RITUXIMAB
     Indication: Diffuse large B-cell lymphoma
     Dosage: END DATE OF 1ST SYSTEMIC TREATMENT 21/AUG/2023
     Route: 065
     Dates: start: 20230502
  18. RITUXIMAB [Suspect]
     Active Substance: RITUXIMAB
     Dosage: END DATE OF 4TH SYSTEMIC TREATMENT 22/JAN/2024
     Route: 065
     Dates: start: 20240119

REACTIONS (1)
  - Diffuse large B-cell lymphoma [Not Recovered/Not Resolved]
